FAERS Safety Report 5352505-7 (Version None)
Quarter: 2007Q2

REPORT INFORMATION
  Report Type: 
  Country: None (occurrence: None)
  Receive Date: 20070518
  Receipt Date: 20060706
  Transmission Date: 20071010
  Serious: Yes (Hospitalization)
  Sender: FDA-Public Use
  Company Number: Q06-038

PATIENT
  Age: 79 Year
  Sex: Male

DRUGS (13)
  1. SAMARIUM (SM-153) [Suspect]
     Indication: PROSTATE CANCER
     Dosage: 0.75 MCI/KG IV
     Route: 042
     Dates: start: 20050203
  2. ZOMETA [Suspect]
     Indication: PROSTATE CANCER
     Dosage: 4 MG IV
     Route: 042
     Dates: start: 20050204
  3. ZOMETA [Suspect]
     Indication: PROSTATE CANCER
     Dosage: 4 MG IV
     Route: 042
     Dates: start: 20050301
  4. HYDROCHLOROTHIAZIDE [Concomitant]
  5. PLAVIX [Concomitant]
  6. ZOCOR [Concomitant]
  7. AVALIDE [Concomitant]
  8. ACTOS [Concomitant]
  9. PREVACID [Concomitant]
  10. DURAGESIC-100 [Concomitant]
  11. OXYCODONE HCL [Concomitant]
  12. ARANESP [Concomitant]
  13. REGLAN [Concomitant]

REACTIONS (1)
  - CARDIAC DISORDER [None]
